FAERS Safety Report 4855129-0 (Version None)
Quarter: 2005Q4

REPORT INFORMATION
  Report Type: 
  Country: None (occurrence: None)
  Receive Date: 20051214
  Receipt Date: 20051202
  Transmission Date: 20060501
  Serious: Yes (Other)
  Sender: FDA-Public Use
  Company Number: S05-USA-05098-01

PATIENT
  Sex: Female

DRUGS (1)
  1. LEXAPRO [Suspect]
     Dates: start: 20050401, end: 20050101

REACTIONS (2)
  - AGEUSIA [None]
  - PAROSMIA [None]
